FAERS Safety Report 23859816 (Version 2)
Quarter: 2024Q2

REPORT INFORMATION
  Report Type: Spontaneous
  Country: CA (occurrence: CA)
  Receive Date: 20240515
  Receipt Date: 20240620
  Transmission Date: 20240716
  Serious: Yes (Other)
  Sender: FDA-Public Use
  Company Number: CA-BAUSCH-BL-2024-007598

PATIENT
  Age: 53 Year
  Sex: Female

DRUGS (3)
  1. ALBUTEROL SULFATE [Suspect]
     Active Substance: ALBUTEROL SULFATE
     Indication: Product used for unknown indication
     Route: 065
  2. BREO ELLIPTA [Suspect]
     Active Substance: FLUTICASONE FUROATE\VILANTEROL TRIFENATATE
     Indication: Product used for unknown indication
     Route: 065
  3. GLYCOPYRROLATE [Concomitant]
     Active Substance: GLYCOPYRROLATE
     Indication: Product used for unknown indication

REACTIONS (11)
  - Dyspnoea [Unknown]
  - Gait disturbance [Unknown]
  - Illness [Unknown]
  - Oropharyngeal pain [Unknown]
  - Speech disorder [Unknown]
  - Syncope [Unknown]
  - Chest discomfort [Unknown]
  - Productive cough [Unknown]
  - Cough [Unknown]
  - Wheezing [Unknown]
  - Dizziness [Unknown]
